FAERS Safety Report 6414412-8 (Version None)
Quarter: 2009Q4

REPORT INFORMATION
  Report Type: 
  Country: None (occurrence: None)
  Receive Date: 20091026
  Receipt Date: 20091008
  Transmission Date: 20100525
  Serious: Yes (Death, Disabling, Other)
  Sender: FDA-Public Use
  Company Number: JP-TEVA-183974ISR

PATIENT
  Sex: Male
  Weight: 53 kg

DRUGS (6)
  1. CISPLATIN [Suspect]
     Indication: GASTRIC CANCER
     Dosage: 50 MG/BODY
     Route: 041
     Dates: start: 20070601, end: 20070619
  2. IRINOTECAN HYDROCHLORIDE [Suspect]
     Indication: GASTRIC CANCER
     Dosage: 100 MG/BODY
     Route: 041
     Dates: start: 20070601, end: 20070619
  3. MORPHINE HYDROCHLORIDE [Concomitant]
  4. DICLOFENAC SODIUM [Concomitant]
     Dates: start: 20070525, end: 20070702
  5. OXYCODONE HCL [Concomitant]
  6. RED BLOOD CELLS [Concomitant]
     Dates: start: 20070608, end: 20070621

REACTIONS (5)
  - CEREBRAL INFARCTION [None]
  - HAEMOGLOBIN DECREASED [None]
  - LEUKOPENIA [None]
  - NEUTROPENIA [None]
  - THROMBOCYTOPENIA [None]
